FAERS Safety Report 6077285-1 (Version None)
Quarter: 2009Q1

REPORT INFORMATION
  Report Type: 
  Country: None (occurrence: None)
  Receive Date: 20090213
  Receipt Date: 20090209
  Transmission Date: 20090719
  Serious: Yes (Life-Threatening, Hospitalization)
  Sender: FDA-Public Use
  Company Number: A0767469A

PATIENT
  Sex: Female

DRUGS (2)
  1. LAMICTAL [Suspect]
     Dosage: 1500MG PER DAY
     Route: 048
     Dates: end: 20090101
  2. UNKNOWN [Concomitant]

REACTIONS (4)
  - DISORIENTATION [None]
  - OVERDOSE [None]
  - PYREXIA [None]
  - RASH [None]
